FAERS Safety Report 21622690 (Version 1)
Quarter: 2022Q4

REPORT INFORMATION
  Report Type: Spontaneous
  Country: US (occurrence: None)
  Receive Date: 20221119
  Receipt Date: 20221119
  Transmission Date: 20230112
  Serious: Yes (Disabling, Other)
  Sender: FDA-Public Use
  Company Number: None

PATIENT
  Age: 38 Year
  Sex: Male
  Weight: 76.5 kg

DRUGS (4)
  1. SIGNATURE CARE ACID CONTROLLER MAXIMUM STRENGTH [Suspect]
     Active Substance: FAMOTIDINE
     Indication: Dyspepsia
     Dosage: OTHER QUANTITY : 1 TABLET(S);?OTHER FREQUENCY : AS NEEDED;?
     Route: 048
     Dates: start: 20221001, end: 20221101
  2. LISINOPRIL [Concomitant]
     Active Substance: LISINOPRIL
  3. PRAVACHOL [Concomitant]
     Active Substance: PRAVASTATIN SODIUM
  4. Vitamin D 1000UI [Concomitant]

REACTIONS (8)
  - Fatigue [None]
  - Asthenia [None]
  - Arthralgia [None]
  - Myalgia [None]
  - Pain in extremity [None]
  - Anxiety [None]
  - Panic attack [None]
  - Muscle spasms [None]

NARRATIVE: CASE EVENT DATE: 20221012
